FAERS Safety Report 4967145-9 (Version None)
Quarter: 2006Q2

REPORT INFORMATION
  Report Type: 
  Country: None (occurrence: None)
  Receive Date: 20060410
  Receipt Date: 20060329
  Transmission Date: 20061013
  Serious: Yes (Hospitalization)
  Sender: FDA-Public Use
  Company Number: PHBS2006IT04890

PATIENT
  Age: 66 Year
  Sex: Female

DRUGS (4)
  1. LANSOX [Concomitant]
     Dosage: 15 MG, QD
     Route: 048
  2. ASPIRIN [Concomitant]
     Dosage: 1 DF, QD
  3. ASACOL [Concomitant]
     Route: 048
  4. GLEEVEC [Suspect]
     Indication: POLYCYTHAEMIA VERA
     Dosage: 500 MG/DAY
     Route: 048
     Dates: start: 20051102, end: 20060327

REACTIONS (2)
  - LICHENOID KERATOSIS [None]
  - NAIL PIGMENTATION [None]
